FAERS Safety Report 6469181-2 (Version None)
Quarter: 2009Q4

REPORT INFORMATION
  Report Type: 
  Country: None (occurrence: None)
  Receive Date: 20091203
  Receipt Date: 20071015
  Transmission Date: 20100525
  Serious: Yes (Hospitalization)
  Sender: FDA-Public Use
  Company Number: US-ELI_LILLY_AND_COMPANY-US200707001317

PATIENT
  Sex: Female

DRUGS (8)
  1. BYETTA [Suspect]
     Indication: TYPE 2 DIABETES MELLITUS
     Dosage: 5 UG, 2/D
     Route: 058
     Dates: start: 20060913, end: 20061001
  2. BYETTA [Suspect]
     Dosage: 10 UG, 2/D
     Route: 058
     Dates: start: 20061001
  3. GLYBURIDE [Concomitant]
     Dosage: 5 MG, DAILY (1/D)
     Route: 048
  4. GLYBURIDE [Concomitant]
     Dosage: 2.5 MG, DAILY (1/D)
     Route: 048
  5. GLUCOPHAGE [Concomitant]
     Dosage: 2000 MG, EACH EVENING
     Route: 048
     Dates: end: 20070618
  6. CYMBALTA [Concomitant]
     Indication: DIABETIC NEUROPATHY
  7. LISINOPRIL [Concomitant]
  8. MELATONIN [Concomitant]
     Indication: INSOMNIA

REACTIONS (4)
  - BLOOD GLUCOSE DECREASED [None]
  - BLOOD GLUCOSE INCREASED [None]
  - HYPERTENSION [None]
  - MYOCARDIAL INFARCTION [None]
